FAERS Safety Report 7758989-9 (Version None)
Quarter: 2011Q3

REPORT INFORMATION
  Report Type: 
  Country: None (occurrence: None)
  Receive Date: 20110915
  Receipt Date: 20110902
  Transmission Date: 20111222
  Serious: Yes (Hospitalization, Other)
  Sender: FDA-Public Use
  Company Number: KAD201109-000011

PATIENT
  Age: 59 Year
  Sex: Female
  Weight: 131.0895 kg

DRUGS (7)
  1. NORVASC [Concomitant]
  2. RIBAVIRIN (RIBAVIRIN) [Suspect]
     Indication: HEPATITIS C
     Dosage: 1200 MG  DAILY, ORAL
     Route: 048
     Dates: start: 20110701, end: 20110902
  3. PEGASYS [Suspect]
     Indication: HEPATITIS C
     Dosage: 180 MCG WEEKLY, SUBCUTANEOUS
     Route: 058
     Dates: start: 20110701, end: 20110902
  4. CYCLOPHOSPHAMIDE [Concomitant]
  5. INCIVEK [Suspect]
     Indication: HEPATITIS C
     Dosage: 750 MG TOTAL DAILY DOSE, THRICE DAILY, ORAL
     Route: 048
     Dates: start: 20110701, end: 20110902
  6. HYDROCHLOROTHIAZIDE [Concomitant]
  7. NORMODYNE [Concomitant]

REACTIONS (5)
  - SYNCOPE [None]
  - ASTHENIA [None]
  - ATRIOVENTRICULAR BLOCK [None]
  - FATIGUE [None]
  - LOSS OF CONSCIOUSNESS [None]
